FAERS Safety Report 4616750-8 (Version None)
Quarter: 2005Q1

REPORT INFORMATION
  Report Type: 
  Country: None (occurrence: None)
  Receive Date: 20050321
  Receipt Date: 20030707
  Transmission Date: 20050727
  Serious: No
  Sender: FDA-Public Use
  Company Number: 5946

PATIENT
  Age: 55 Year
  Sex: Male

DRUGS (4)
  1. AMIODARONE HCL [Suspect]
     Indication: ATRIAL FIBRILLATION
     Dosage: 200 MG PO
     Route: 048
     Dates: start: 19960101, end: 20020201
  2. ACETYLSALICYLIC ACID SRT [Concomitant]
  3. DIGOXIN [Concomitant]
  4. CANDESARTAN [Concomitant]

REACTIONS (1)
  - CHEST X-RAY ABNORMAL [None]
